FAERS Safety Report 16684251 (Version 3)
Quarter: 2019Q4

REPORT INFORMATION
  Report Type: Spontaneous
  Country: US (occurrence: US)
  Receive Date: 20190808
  Receipt Date: 20191107
  Transmission Date: 20200122
  Serious: No
  Sender: FDA-Public Use
  Company Number: US-ELI_LILLY_AND_COMPANY-US201908003737

PATIENT
  Sex: Female

DRUGS (1)
  1. EMGALITY [Suspect]
     Active Substance: GALCANEZUMAB-GNLM
     Indication: MIGRAINE
     Dosage: 01 DOSAGE FORM, UNKNOWN
     Route: 065
     Dates: start: 201907

REACTIONS (5)
  - Chest pain [Not Recovered/Not Resolved]
  - Gastric disorder [Unknown]
  - Anxiety [Not Recovered/Not Resolved]
  - Panic attack [Not Recovered/Not Resolved]
  - Dysphagia [Not Recovered/Not Resolved]
